FAERS Safety Report 9378121 (Version 2)
Quarter: 2013Q3

REPORT INFORMATION
  Report Type: Spontaneous
  Country: ES (occurrence: ES)
  Receive Date: 20130701
  Receipt Date: 20130709
  Transmission Date: 20140515
  Serious: Yes (Other)
  Sender: FDA-Public Use
  Company Number: ES-GLAXOSMITHKLINE-B0894013A

PATIENT
  Age: 51 Year
  Sex: Female

DRUGS (4)
  1. TROBALT [Suspect]
     Indication: EPILEPSY
     Route: 065
     Dates: start: 20121112, end: 20121122
  2. KEPPRA [Concomitant]
     Indication: EPILEPSY
     Dosage: 2000MG PER DAY
     Route: 048
     Dates: start: 20030101
  3. GABAPENTIN [Concomitant]
     Indication: EPILEPSY
     Dosage: 3600MG PER DAY
     Route: 048
     Dates: start: 20130101
  4. TOPIRAMATE [Concomitant]
     Indication: EPILEPSY
     Dosage: 200MG PER DAY
     Route: 048
     Dates: start: 201205

REACTIONS (1)
  - Urinary retention [Recovered/Resolved]
